FAERS Safety Report 5210926-7 (Version None)
Quarter: 2007Q1

REPORT INFORMATION
  Report Type: 
  Country: None (occurrence: None)
  Receive Date: 20070117
  Receipt Date: 20070108
  Transmission Date: 20070707
  Serious: Yes (Death)
  Sender: FDA-Public Use
  Company Number: US-PFIZER INC-2007003029

PATIENT
  Sex: Female

DRUGS (2)
  1. CELEBREX [Suspect]
     Dates: start: 20020103, end: 20041231
  2. VIOXX [Suspect]
     Dates: start: 20020103, end: 20041231

REACTIONS (1)
  - CARDIAC ARREST [None]
